FAERS Safety Report 21583454 (Version 1)
Quarter: 2022Q4

REPORT INFORMATION
  Report Type: Spontaneous
  Country: US (occurrence: US)
  Receive Date: 20221111
  Receipt Date: 20221111
  Transmission Date: 20230113
  Serious: No
  Sender: FDA-Public Use
  Company Number: US-SA-2022SA456474

PATIENT
  Sex: Male

DRUGS (1)
  1. DUPIXENT [Suspect]
     Active Substance: DUPILUMAB
     Dosage: 300 MG, FREQUENCY: OTHER
     Route: 058

REACTIONS (6)
  - Injection site pain [Unknown]
  - Aphthous ulcer [Unknown]
  - Condition aggravated [Unknown]
  - Pruritus [Unknown]
  - Product dose omission in error [Unknown]
  - Therapeutic product effect decreased [Unknown]
